FAERS Safety Report 4715561-2 (Version None)
Quarter: 2005Q3

REPORT INFORMATION
  Report Type: 
  Country: None (occurrence: None)
  Receive Date: 20050713
  Receipt Date: 20050527
  Transmission Date: 20060218
  Serious: Yes (Other)
  Sender: FDA-Public Use
  Company Number: USA050599243

PATIENT
  Sex: Male

DRUGS (1)
  1. FORTEO [Suspect]

REACTIONS (1)
  - LIVER DISORDER [None]
